FAERS Safety Report 12308115 (Version 1)
Quarter: 2016Q2

REPORT INFORMATION
  Report Type: Spontaneous
  Country: US (occurrence: US)
  Receive Date: 20160426
  Receipt Date: 20160426
  Transmission Date: 20160815
  Serious: Yes (Other)
  Sender: FDA-Public Use
  Company Number: US-SA-2016SA081904

PATIENT
  Sex: Female

DRUGS (1)
  1. AUBAGIO [Suspect]
     Active Substance: TERIFLUNOMIDE
     Route: 065

REACTIONS (8)
  - Tooth infection [Unknown]
  - Appendicitis [Unknown]
  - Drug hypersensitivity [Unknown]
  - Abdominal pain lower [Unknown]
  - Dermatitis contact [Unknown]
  - Unevaluable event [Unknown]
  - Drug dose omission [Unknown]
  - Conjunctivitis [Unknown]
